FAERS Safety Report 24217015 (Version 1)
Quarter: 2024Q3

REPORT INFORMATION
  Report Type: Spontaneous
  Country: US (occurrence: US)
  Receive Date: 20240816
  Receipt Date: 20240816
  Transmission Date: 20241017
  Serious: No
  Sender: NOVARTIS
  Company Number: US-002147023-NVSC2024US166050

PATIENT

DRUGS (1)
  1. IPTACOPAN [Suspect]
     Active Substance: IPTACOPAN
     Indication: Paroxysmal nocturnal haemoglobinuria
     Dosage: 200 MG
     Route: 048
     Dates: start: 20240501

REACTIONS (1)
  - Skin hyperpigmentation [Unknown]
